FAERS Safety Report 20925146 (Version 1)
Quarter: 2022Q2

REPORT INFORMATION
  Report Type: Spontaneous
  Country: ES (occurrence: ES)
  Receive Date: 20220607
  Receipt Date: 20220607
  Transmission Date: 20220721
  Serious: Yes (Life-Threatening, Hospitalization)
  Sender: FDA-Public Use
  Company Number: None

PATIENT
  Age: 51 Year
  Sex: Female

DRUGS (9)
  1. MAYZENT [Suspect]
     Active Substance: SIPONIMOD
     Indication: Multiple sclerosis
     Dosage: PAUTA DE AJUSTE DE LA DOSIS PARA LLEGAR A LA DOSIS DE MANTENIMIENTO (COMPRIMIDOS RECUBIERTOS CON PEL
     Route: 048
     Dates: start: 20210917, end: 20210930
  2. PREDNISONE [Concomitant]
     Active Substance: PREDNISONE
     Indication: Asthma
     Dosage: 5 MG, QD (5 MG COMPRIMIDOS, 30 COMPRIMIDOS)
     Route: 048
     Dates: start: 20210801
  3. EBASTINA ALTER [Concomitant]
     Indication: Hypersensitivity
     Dosage: 10 MG, Q12H (10 MG COMPRIMIDOS RECUBIERTOS CON PELICULA EFG, 20 COMPRIMIDOS)
     Route: 048
     Dates: start: 20210816
  4. BRINTELLIX [Concomitant]
     Active Substance: VORTIOXETINE HYDROBROMIDE
     Indication: Major depression
     Dosage: 15 MG CADA 24 HORAS ( 15 MG COMPRIMIDOS RECUBIERTOS CON PELICULA, 28 COMPRIMIDOS
     Route: 048
     Dates: start: 20210801
  5. ESLICARBAZEPINE ACETATE [Concomitant]
     Active Substance: ESLICARBAZEPINE ACETATE
     Indication: Epilepsy
     Dosage: 1/2 COMPRIMIDO CADA 24 HORAS
     Route: 048
     Dates: start: 20210816
  6. CHOLECALCIFEROL [Concomitant]
     Active Substance: CHOLECALCIFEROL
     Indication: Hypovitaminosis
     Dosage: 1 CADA 2 SEMANAS (25.000 UI/2,5 ML  1 FRASCO DE 2,5 ML)
     Route: 048
     Dates: start: 20210816
  7. HYDROXYCHLOROQUINE SULFATE [Concomitant]
     Active Substance: HYDROXYCHLOROQUINE SULFATE
     Indication: Rheumatoid arthritis
     Dosage: 200 MG, Q24H
     Route: 048
     Dates: start: 20210816
  8. DIAZEPAM [Concomitant]
     Active Substance: DIAZEPAM
     Indication: Anxiety
     Dosage: 5 MG, Q24H COMPRIMIDOS EFG, 30 COMPRIMIDOS
     Route: 048
     Dates: start: 20210816
  9. NABIXIMOLS [Concomitant]
     Active Substance: NABIXIMOLS
     Indication: Muscle spasticity
     Dosage: 4 PULVERACIONES CADA 12 HORAS 2,7 MG/2,5 MG SOLUCION PARA PULVERIZACION BUCAL ,  3 ENVASE DE 10 ML
     Route: 048
     Dates: start: 20210801

REACTIONS (3)
  - Chest pain [Recovered/Resolved]
  - Dyspnoea [Recovered/Resolved]
  - Macular oedema [Recovered/Resolved]

NARRATIVE: CASE EVENT DATE: 20210917
